FAERS Safety Report 14455743 (Version 1)
Quarter: 2018Q1

REPORT INFORMATION
  Report Type: Spontaneous
  Country: US (occurrence: US)
  Receive Date: 20180130
  Receipt Date: 20180130
  Transmission Date: 20180509
  Serious: Yes (Other)
  Sender: FDA-Public Use
  Company Number: US-CONCORDIA PHARMACEUTICALS INC.-GSH201801-000387

PATIENT
  Sex: Female

DRUGS (6)
  1. PLAQUENIL [Suspect]
     Active Substance: HYDROXYCHLOROQUINE SULFATE
  2. BACTRIM [Suspect]
     Active Substance: SULFAMETHOXAZOLE\TRIMETHOPRIM
  3. AMANTADINE. [Suspect]
     Active Substance: AMANTADINE HYDROCHLORIDE
  4. CODEINE SULFATE. [Suspect]
     Active Substance: CODEINE SULFATE
  5. ARAVA [Suspect]
     Active Substance: LEFLUNOMIDE
  6. SULFA [Suspect]
     Active Substance: UNSPECIFIED INGREDIENT

REACTIONS (1)
  - Drug hypersensitivity [Unknown]
